FAERS Safety Report 12460894 (Version 2)
Quarter: 2016Q3

REPORT INFORMATION
  Report Type: Spontaneous
  Country: US (occurrence: US)
  Receive Date: 20160613
  Receipt Date: 20160711
  Transmission Date: 20161109
  Serious: Yes (Other)
  Sender: FDA-Public Use
  Company Number: US-SMITH AND NEPHEW, INC-2016SMT00499

PATIENT
  Age: 63 Year
  Sex: Male
  Weight: 149.66 kg

DRUGS (13)
  1. VITAMIN C [Concomitant]
     Active Substance: ASCORBIC ACID
  2. LATANOPROST. [Concomitant]
     Active Substance: LATANOPROST
  3. METFORMIN [Concomitant]
     Active Substance: METFORMIN HYDROCHLORIDE
  4. ASPIRIN. [Concomitant]
     Active Substance: ASPIRIN
     Dosage: UNK, 2X/DAY
  5. FLUTICASONE [Concomitant]
     Active Substance: FLUTICASONE\FLUTICASONE PROPIONATE
  6. LISINOPRIL. [Concomitant]
     Active Substance: LISINOPRIL
  7. MULTIVITAMIN [Concomitant]
     Active Substance: VITAMINS
  8. INVOKANA [Concomitant]
     Active Substance: CANAGLIFLOZIN
  9. IPRATROPIUM [Concomitant]
     Active Substance: IPRATROPIUM
  10. HUMALOG [Concomitant]
     Active Substance: INSULIN LISPRO
  11. REGRANEX [Suspect]
     Active Substance: BECAPLERMIN
     Indication: DIABETIC ULCER
     Dosage: UNK, 1X/DAY
     Route: 061
     Dates: start: 201605
  12. LANTUS [Concomitant]
     Active Substance: INSULIN GLARGINE
  13. CARVEDILOL. [Concomitant]
     Active Substance: CARVEDILOL

REACTIONS (3)
  - Hyperkeratosis [Recovered/Resolved]
  - Wound complication [Unknown]
  - Toe operation [Unknown]

NARRATIVE: CASE EVENT DATE: 2016
